FAERS Safety Report 6161498-4 (Version None)
Quarter: 2009Q2

REPORT INFORMATION
  Report Type: 
  Country: None (occurrence: None)
  Receive Date: 20090421
  Receipt Date: 20090414
  Transmission Date: 20091009
  Serious: Yes (Hospitalization)
  Sender: FDA-Public Use
  Company Number: PHEH2009US03647

PATIENT
  Age: 67 Year
  Sex: Female
  Weight: 69.388 kg

DRUGS (1)
  1. RECLAST [Suspect]
     Indication: OSTEOPOROSIS POSTMENOPAUSAL
     Dosage: UNK
     Dates: start: 20090313

REACTIONS (2)
  - HYPOAESTHESIA [None]
  - PERIPHERAL VASCULAR DISORDER [None]
